FAERS Safety Report 6588083-4 (Version None)
Quarter: 2010Q1

REPORT INFORMATION
  Report Type: 
  Country: None (occurrence: None)
  Receive Date: 20100218
  Receipt Date: 20100209
  Transmission Date: 20100710
  Serious: Yes (Other)
  Sender: FDA-Public Use
  Company Number: PHHY2010LT06976

PATIENT
  Age: 20 Year
  Sex: Female

DRUGS (1)
  1. TRILEPTAL [Suspect]
     Indication: EPILEPSY
     Dosage: 300 MG
     Route: 048

REACTIONS (4)
  - DISORIENTATION [None]
  - FEELING ABNORMAL [None]
  - SPEECH DISORDER [None]
  - SWOLLEN TONGUE [None]
